FAERS Safety Report 20467125 (Version 1)
Quarter: 2022Q1

REPORT INFORMATION
  Report Type: Spontaneous
  Country: ES (occurrence: ES)
  Receive Date: 20220214
  Receipt Date: 20220214
  Transmission Date: 20220424
  Serious: Yes (Hospitalization, Other)
  Sender: FDA-Public Use
  Company Number: ES-AEMPS-1099164

PATIENT
  Age: 86 Year
  Sex: Female

DRUGS (9)
  1. PIPERACILLIN AND TAZOBACTAM [Suspect]
     Active Substance: PIPERACILLIN SODIUM\TAZOBACTAM SODIUM
     Indication: Cholecystitis acute
     Dosage: UNK (4000.0 MG EVERY 8 HOURS)
     Route: 042
     Dates: start: 20220106, end: 20220110
  2. PARACETAMOL NORMON [Concomitant]
     Indication: Product used for unknown indication
     Dosage: UNK (750.0 MG DECOCE)
     Route: 048
     Dates: start: 20190717
  3. PREMAX [Concomitant]
     Indication: Neuralgia
     Dosage: UNK (75.0 MG C/24 H NOC)
     Route: 048
     Dates: start: 20211116
  4. QUETIAPINE FUMARATE [Concomitant]
     Active Substance: QUETIAPINE FUMARATE
     Indication: Depression
     Dosage: UNK (100.0 MG CE)
     Route: 048
     Dates: start: 20210928
  5. QUETIAPINE FUMARATE [Concomitant]
     Active Substance: QUETIAPINE FUMARATE
     Indication: Depression
     Dosage: UNK (25.0 MG DECO)
     Route: 048
     Dates: start: 20210928
  6. RAMIPRIL [Concomitant]
     Active Substance: RAMIPRIL
     Indication: Essential hypertension
     Dosage: UNK (5.0 MG DE)
     Route: 048
     Dates: start: 20210929
  7. SPIRIVA RESPIMAT [Concomitant]
     Active Substance: TIOTROPIUM BROMIDE
     Indication: Asthma
     Dosage: UNK (2.0 PUFF C/24 H)
     Route: 050
     Dates: start: 20200917
  8. URSOBILANE [Concomitant]
     Indication: Cholecystitis acute
     Dosage: UNK (150.0 MG DECOCE)
     Route: 048
     Dates: start: 20210928
  9. VENTOLIN [Concomitant]
     Active Substance: ALBUTEROL SULFATE
     Indication: Asthma
     Dosage: UNK (100.0 MCG EVERY 8 HOURS)
     Route: 050
     Dates: start: 20110708

REACTIONS (2)
  - Delirium [Recovered/Resolved]
  - Confusional state [Recovered/Resolved]

NARRATIVE: CASE EVENT DATE: 20220109
